FAERS Safety Report 5353489-8 (Version None)
Quarter: 2007Q2

REPORT INFORMATION
  Report Type: 
  Country: None (occurrence: None)
  Receive Date: 20070612
  Receipt Date: 20070604
  Transmission Date: 20071010
  Serious: Yes (Death, Other)
  Sender: FDA-Public Use
  Company Number: HQWYE851115MAR04

PATIENT
  Sex: Female

DRUGS (3)
  1. PREMARIN [Suspect]
     Dosage: UNKNOWN
     Route: 048
     Dates: start: 19830101, end: 20021127
  2. MEDROXYPROGESTERONE [Suspect]
     Dosage: UNKNOWN
     Route: 048
     Dates: start: 19830101, end: 20021127
  3. PREMPRO [Suspect]
     Dosage: UNKNOWN
     Route: 048
     Dates: start: 19960101, end: 19960101

REACTIONS (1)
  - OVARIAN CANCER METASTATIC [None]
